FAERS Safety Report 9263987 (Version 4)
Quarter: 2013Q2

REPORT INFORMATION
  Report Type: Spontaneous
  Country: JP (occurrence: JP)
  Receive Date: 20130430
  Receipt Date: 20130515
  Transmission Date: 20140414
  Serious: Yes (Hospitalization)
  Sender: FDA-Public Use
  Company Number: JP-009507513-1304JPN016523

PATIENT
  Age: 83 Year
  Sex: Male

DRUGS (1)
  1. GASTER [Suspect]
     Dosage: 100 MG, BID
     Route: 048
     Dates: end: 20130422

REACTIONS (3)
  - Pyrexia [Unknown]
  - Diarrhoea [Unknown]
  - Overdose [Unknown]
